FAERS Safety Report 10985632 (Version 1)
Quarter: 2015Q2

REPORT INFORMATION
  Report Type: Spontaneous
  Country: US (occurrence: US)
  Receive Date: 20150404
  Receipt Date: 20150404
  Transmission Date: 20150821
  Serious: No
  Sender: FDA-Public Use
  Company Number: US-SA-2014SA164536

PATIENT
  Age: 75 Year
  Sex: Female

DRUGS (1)
  1. ALLEGRA-D [Suspect]
     Active Substance: FEXOFENADINE\PSEUDOEPHEDRINE
     Indication: HYPERSENSITIVITY
     Dosage: PRODUCT START DATE: 2 WEEK AGO?DAILY DOSE: 60MG/120MG
     Route: 048

REACTIONS (1)
  - Medication residue present [Recovered/Resolved]
